FAERS Safety Report 9191389 (Version 1)
Quarter: 2013Q1

REPORT INFORMATION
  Report Type: Report from Study
  Country: DE (occurrence: DE)
  Receive Date: 20130326
  Receipt Date: 20130326
  Transmission Date: 20140127
  Serious: Yes (Hospitalization, Disabling)
  Sender: FDA-Public Use
  Company Number: DE-TEVA-392529ISR

PATIENT
  Age: 63 Year
  Sex: Female
  Weight: 89 kg

DRUGS (3)
  1. PACLITAXEL [Suspect]
     Indication: OVARIAN CANCER
     Dosage: 355.3 MILLIGRAM DAILY; DATE OF LAST DOSE PRIOR TO SAE 18-JAN-2013
     Route: 042
     Dates: start: 20121114, end: 20130308
  2. CARBOPLATIN [Suspect]
     Dosage: 744.5 MILLIGRAM DAILY; DATE OF LAST DOSE PRIOR TO SAE 15-FEB-2013
     Route: 042
     Dates: start: 20121114, end: 20130308
  3. BEVACIZUMAB [Suspect]
     Dosage: 1380 MILLIGRAM DAILY; DATE OF LAST DOSE PRIOR TO SAE 15-FEB-2013
     Route: 042
     Dates: start: 20121207, end: 20130308

REACTIONS (1)
  - Polyneuropathy [Not Recovered/Not Resolved]
